FAERS Safety Report 7471060-9 (Version None)
Quarter: 2011Q2

REPORT INFORMATION
  Report Type: 
  Country: None (occurrence: None)
  Receive Date: 20110510
  Receipt Date: 20110502
  Transmission Date: 20111010
  Serious: No
  Sender: FDA-Public Use
  Company Number: FR-CEPHALON-2011002246

PATIENT
  Sex: Female

DRUGS (12)
  1. OXYCONTIN LP [Concomitant]
  2. NEO RECORMON [Suspect]
     Dates: end: 20110324
  3. TREANDA [Suspect]
     Indication: MULTIPLE MYELOMA
     Route: 042
     Dates: end: 20110310
  4. AREDIA [Concomitant]
     Dates: start: 20110310
  5. TREANDA [Suspect]
     Route: 042
     Dates: start: 20110101, end: 20110101
  6. LASIX [Concomitant]
  7. LYRICA [Concomitant]
  8. SOLU-MEDROL [Concomitant]
     Dates: start: 20110310
  9. TREANDA [Suspect]
     Route: 042
     Dates: start: 20110310
  10. IMOVANE [Concomitant]
  11. ALPRAZOLAM [Concomitant]
  12. ACETAMINOPHEN [Concomitant]

REACTIONS (3)
  - ECZEMA [None]
  - EOSINOPHILIA [None]
  - MOUTH ULCERATION [None]
